FAERS Safety Report 8054487-6 (Version None)
Quarter: 2012Q1

REPORT INFORMATION
  Report Type: 
  Country: None (occurrence: None)
  Receive Date: 20120118
  Receipt Date: 20120112
  Transmission Date: 20120608
  Serious: Yes (Other)
  Sender: FDA-Public Use
  Company Number: CA-MERCK-1111USA02290

PATIENT
  Age: 71 Year
  Sex: Female

DRUGS (5)
  1. METFORMIN [Concomitant]
     Indication: TYPE 2 DIABETES MELLITUS
     Route: 065
  2. HYDROCHLOROTHIAZIDE [Concomitant]
     Indication: HYPERTENSION
     Route: 065
  3. COZAAR [Concomitant]
     Indication: HYPERTENSION
     Route: 048
  4. ZOCOR [Concomitant]
     Indication: HYPERLIPIDAEMIA
     Route: 048
  5. JANUVIA [Suspect]
     Indication: DIABETES MELLITUS
     Route: 048
     Dates: start: 20111105, end: 20111111

REACTIONS (5)
  - DIPLOPIA [None]
  - BLINDNESS [None]
  - VISION BLURRED [None]
  - LACRIMATION INCREASED [None]
  - EYE PRURITUS [None]
